FAERS Safety Report 4895026-8 (Version None)
Quarter: 2006Q1

REPORT INFORMATION
  Report Type: 
  Country: None (occurrence: None)
  Receive Date: 20060130
  Receipt Date: 20051004
  Transmission Date: 20060701
  Serious: No
  Sender: FDA-Public Use
  Company Number: US-BRISTOL-MYERS SQUIBB COMPANY-13131016

PATIENT
  Age: 56 Year
  Sex: Female
  Weight: 104 kg

DRUGS (6)
  1. GLUCOPHAGE [Suspect]
     Indication: DIABETES MELLITUS
     Route: 048
  2. LIPITOR [Concomitant]
  3. ACCUPRIL [Concomitant]
  4. VALIUM [Concomitant]
  5. INDERAL [Concomitant]
  6. HYDROCHLOROTHIAZIDE [Concomitant]

REACTIONS (2)
  - PRURITUS [None]
  - RASH [None]
